FAERS Safety Report 7949041-8 (Version None)
Quarter: 2011Q4

REPORT INFORMATION
  Report Type: 
  Country: None (occurrence: None)
  Receive Date: 20111130
  Receipt Date: 20111025
  Transmission Date: 20120403
  Serious: No
  Sender: FDA-Public Use
  Company Number: US-BRISTOL-MYERS SQUIBB COMPANY-16193716

PATIENT
  Age: 44 Year
  Sex: Male

DRUGS (1)
  1. KOMBIGLYZE XR [Suspect]
     Indication: DIABETES MELLITUS
     Dosage: 1DF=2.5/1000MG

REACTIONS (2)
  - BLOOD CREATINE PHOSPHOKINASE ABNORMAL [None]
  - MYALGIA [None]
